FAERS Safety Report 5661470-4 (Version None)
Quarter: 2008Q1

REPORT INFORMATION
  Report Type: 
  Country: None (occurrence: None)
  Receive Date: 20080311
  Receipt Date: 20080303
  Transmission Date: 20080703
  Serious: Yes (Hospitalization)
  Sender: FDA-Public Use
  Company Number: US-MERCK-0705USA02819

PATIENT
  Age: 84 Year
  Sex: Male

DRUGS (1)
  1. FOSAMAX [Suspect]
     Indication: OSTEOPOROSIS
     Route: 048
     Dates: start: 20040601, end: 20060101

REACTIONS (10)
  - ANXIETY [None]
  - BACK DISORDER [None]
  - DEPRESSION [None]
  - HYPERTENSION [None]
  - HYPOAESTHESIA ORAL [None]
  - JAW DISORDER [None]
  - JOINT RANGE OF MOTION DECREASED [None]
  - OEDEMA MOUTH [None]
  - ORAL PAIN [None]
  - TOOTH LOSS [None]
